FAERS Safety Report 15894520 (Version 1)
Quarter: 2019Q1

REPORT INFORMATION
  Report Type: Spontaneous
  Country: CN (occurrence: CN)
  Receive Date: 20190131
  Receipt Date: 20190131
  Transmission Date: 20190417
  Serious: Yes (Other)
  Sender: FDA-Public Use
  Company Number: CN-ROCHE-2255343

PATIENT
  Age: 60 Year
  Sex: Male
  Weight: 70 kg

DRUGS (4)
  1. MADOPAR [Suspect]
     Active Substance: BENSERAZIDE HYDROCHLORIDE\LEVODOPA
     Indication: PARKINSON^S DISEASE
     Route: 048
     Dates: start: 20161201
  2. VENLAFAXINE HYDROCHLORIDE. [Suspect]
     Active Substance: VENLAFAXINE HYDROCHLORIDE
     Indication: DEPRESSION
     Route: 048
     Dates: start: 20161201
  3. CLONAZEPAM. [Suspect]
     Active Substance: CLONAZEPAM
     Indication: SLEEP DISORDER
     Route: 048
     Dates: start: 20161201
  4. AMANTADINE HYDROCHLORIDE. [Suspect]
     Active Substance: AMANTADINE HYDROCHLORIDE
     Indication: DEPRESSION
     Route: 048
     Dates: start: 20161201

REACTIONS (1)
  - Haematuria [Recovering/Resolving]

NARRATIVE: CASE EVENT DATE: 20181115
